FAERS Safety Report 16933982 (Version 2)
Quarter: 2019Q4

REPORT INFORMATION
  Report Type: Spontaneous
  Country: US (occurrence: US)
  Receive Date: 20191018
  Receipt Date: 20191030
  Transmission Date: 20200122
  Serious: Yes (Death, Other)
  Sender: FDA-Public Use
  Company Number: US-ALVOGEN-2019-ALVOGEN-101686

PATIENT
  Sex: Female

DRUGS (2)
  1. MACROBID [Suspect]
     Active Substance: NITROFURANTOIN\NITROFURANTOIN MONOHYDRATE
     Indication: PRODUCT USED FOR UNKNOWN INDICATION
     Dosage: 100 MG, BID
     Route: 064
     Dates: start: 20111218
  2. ASCORBIC ACID/CALCIUM PANTOTHENATE/CYANOCOBALAMIN/ERGOCALCIFEROL/NICOTINAMIDE/PYRIDOXINE HYDROCHLORI [Concomitant]
     Indication: PRODUCT USED FOR UNKNOWN INDICATION
     Route: 064

REACTIONS (7)
  - Brain injury [Fatal]
  - Foetal exposure during pregnancy [Unknown]
  - Acute lung injury [Fatal]
  - Hydrops foetalis [Fatal]
  - Ischaemia [Fatal]
  - Foetal-maternal haemorrhage [Fatal]
  - Hypoxia [Fatal]

NARRATIVE: CASE EVENT DATE: 201112
